FAERS Safety Report 15116049 (Version 2)
Quarter: 2018Q4

REPORT INFORMATION
  Report Type: Spontaneous
  Country: DE (occurrence: DE)
  Receive Date: 20180706
  Receipt Date: 20181005
  Transmission Date: 20190204
  Serious: Yes (Death, Life-Threatening, Hospitalization, Other)
  Sender: FDA-Public Use
  Company Number: DE-AUROBINDO-AUR-APL-2016-15363

PATIENT
  Age: 73 Year
  Sex: Male

DRUGS (18)
  1. ONDANSETRON [Concomitant]
     Active Substance: ONDANSETRON
     Dosage: DOSAGE FORM: UNSPECIFIED
     Route: 065
  2. AMINOSALICYLIC ACID [Concomitant]
     Active Substance: AMINOSALICYLIC ACID
     Indication: PRODUCT USED FOR UNKNOWN INDICATION
     Dosage: UNK
     Route: 065
  3. DOXORUBICIN CONCENTRATE FOR SOLUTION FOR INFUSION [Suspect]
     Active Substance: DOXORUBICIN
     Indication: LYMPHOMA
  4. OXALIPLATIN. [Suspect]
     Active Substance: OXALIPLATIN
     Indication: COMPOSITE LYMPHOMA
     Dosage: UNK
     Route: 065
  5. METOPROLOL SUCCINATE. [Concomitant]
     Active Substance: METOPROLOL SUCCINATE
     Indication: PRODUCT USED FOR UNKNOWN INDICATION
     Dosage: UNK
     Route: 065
  6. DOXORUBICIN CONCENTRATE FOR SOLUTION FOR INFUSION [Suspect]
     Active Substance: DOXORUBICIN
     Indication: B-CELL LYMPHOMA
     Dosage: 20 MILLIGRAM/SQ. METER, 3 WEEK, 6 CYCLE
     Route: 065
     Dates: start: 201409
  7. ETOPOSIDE. [Suspect]
     Active Substance: ETOPOSIDE
     Indication: LYMPHOMA
     Dosage: UNK
     Route: 065
     Dates: start: 201506, end: 201507
  8. VINCRISTINE [Suspect]
     Active Substance: VINCRISTINE
     Indication: LEUKOPENIA
     Dosage: 1, 2 WEEK
     Route: 065
  9. GEMCITABINE [Suspect]
     Active Substance: GEMCITABINE\GEMCITABINE HYDROCHLORIDE
     Indication: COMPOSITE LYMPHOMA
     Dosage: UNK
     Route: 065
  10. BENDAMUSTINE [Suspect]
     Active Substance: BENDAMUSTINE
     Indication: LEUKOPENIA
     Dosage: UNK
     Route: 065
  11. NAFTIDROFURYL OXALATE [Concomitant]
     Active Substance: NAFRONYL OXALATE
     Indication: PRODUCT USED FOR UNKNOWN INDICATION
     Dosage: UNK
     Route: 065
  12. PREDNISOLONE. [Suspect]
     Active Substance: PREDNISOLONE
     Indication: LEUKOPENIA
     Dosage: 1 UNK, 2 WEEK
     Route: 065
     Dates: start: 2015
  13. ONDANSETRON [Concomitant]
     Active Substance: ONDANSETRON
     Indication: PREMEDICATION
     Dosage: 8 MG,PER SESSION
     Route: 065
  14. DOXORUBICIN CONCENTRATE FOR SOLUTION FOR INFUSION [Suspect]
     Active Substance: DOXORUBICIN
     Indication: PERIPHERAL T-CELL LYMPHOMA UNSPECIFIED
  15. PIXANTRONE [Suspect]
     Active Substance: PIXANTRONE
     Indication: LEUKOPENIA
     Dosage: UNK
     Route: 065
     Dates: start: 201506, end: 201507
  16. NEUPOGEN [Suspect]
     Active Substance: FILGRASTIM
     Indication: LEUKOPENIA
     Dosage: 1 UNK, ONCE A DAY
     Route: 058
     Dates: start: 2015
  17. CYCLOPHOSPHAMIDE. [Suspect]
     Active Substance: CYCLOPHOSPHAMIDE
     Indication: LEUKOPENIA
     Dosage: 1, 2 WEEK
     Route: 065
  18. FILGRASTIM [Suspect]
     Active Substance: FILGRASTIM
     Indication: COMPOSITE LYMPHOMA
     Route: 065

REACTIONS (14)
  - Peripheral T-cell lymphoma unspecified [Fatal]
  - Rash papular [Unknown]
  - Palmar-plantar erythrodysaesthesia syndrome [Unknown]
  - Product use in unapproved indication [Unknown]
  - Bone marrow toxicity [Unknown]
  - Leukopenia [Unknown]
  - Drug eruption [Recovered/Resolved]
  - Rash [Unknown]
  - Rash macular [Unknown]
  - Pyrexia [Recovered/Resolved]
  - Pneumonia [Fatal]
  - B-cell lymphoma [Fatal]
  - Off label use [Unknown]
  - Skin toxicity [Unknown]

NARRATIVE: CASE EVENT DATE: 201411
